FAERS Safety Report 6943736-0 (Version None)
Quarter: 2010Q3

REPORT INFORMATION
  Report Type: 
  Country: None (occurrence: None)
  Receive Date: 20100826
  Receipt Date: 20100820
  Transmission Date: 20110219
  Serious: Yes (Death, Hospitalization)
  Sender: FDA-Public Use
  Company Number: A0788084A

PATIENT
  Age: 48 Year
  Sex: Female

DRUGS (1)
  1. AVANDIA [Suspect]
     Indication: TYPE 2 DIABETES MELLITUS
     Dosage: 8MG PER DAY
     Route: 048
     Dates: start: 20011001, end: 20040401

REACTIONS (7)
  - CARDIAC ARREST [None]
  - CEREBROVASCULAR ACCIDENT [None]
  - DEATH [None]
  - FLUID OVERLOAD [None]
  - HEART INJURY [None]
  - HEPATIC FAILURE [None]
  - MYOCARDIAL INFARCTION [None]
